FAERS Safety Report 17664536 (Version 2)
Quarter: 2020Q2

REPORT INFORMATION
  Report Type: Spontaneous
  Country: US (occurrence: US)
  Receive Date: 20200414
  Receipt Date: 20200414
  Transmission Date: 20200713
  Serious: No
  Sender: FDA-Public Use
  Company Number: US-MYLANLABS-2020M1033106

PATIENT

DRUGS (1)
  1. ESTRADIOL. [Suspect]
     Active Substance: ESTRADIOL
     Dosage: UNK

REACTIONS (5)
  - Weight increased [Recovered/Resolved]
  - Alopecia [Recovered/Resolved]
  - Mood swings [Recovered/Resolved]
  - Nervousness [Recovered/Resolved]
  - Abdominal distension [Recovered/Resolved]
